FAERS Safety Report 18269179 (Version 1)
Quarter: 2020Q3

REPORT INFORMATION
  Report Type: Spontaneous
  Country: FR (occurrence: FR)
  Receive Date: 20200915
  Receipt Date: 20200915
  Transmission Date: 20201103
  Serious: Yes (Other)
  Sender: FDA-Public Use
  Company Number: FR-JAZZ-2019-FR-012811

PATIENT
  Sex: Male
  Weight: 64 kg

DRUGS (2)
  1. KIDROLASE [Suspect]
     Active Substance: ASPARAGINASE
     Indication: PRODUCT USED FOR UNKNOWN INDICATION
     Dosage: 25000 IU EVERY TWO DAYS
     Dates: start: 20190808
  2. KIDROLASE [Suspect]
     Active Substance: ASPARAGINASE
     Dosage: EVERY TWO DAYS
     Dates: start: 20190810

REACTIONS (1)
  - Hypersensitivity [Unknown]
